FAERS Safety Report 9450419 (Version 1)
Quarter: 2013Q3

REPORT INFORMATION
  Report Type: Spontaneous
  Country: BR (occurrence: BR)
  Receive Date: 20130809
  Receipt Date: 20130809
  Transmission Date: 20140515
  Serious: Yes (Other)
  Sender: FDA-Public Use
  Company Number: BR-PFIZER INC-2013206305

PATIENT
  Age: 68 Year
  Sex: Female
  Weight: 60 kg

DRUGS (9)
  1. FRONTAL [Suspect]
     Indication: DEPRESSION
     Dosage: 1 TABLET IN THE MORNING AND OTHER (1 TABLET) AT NIGHT
     Route: 048
     Dates: start: 2005
  2. FRONTAL [Suspect]
     Indication: BLOOD PRESSURE
     Dosage: UNK
     Dates: start: 20090712
  3. FRONTAL [Suspect]
     Indication: MIGRAINE
  4. NAPRIX [Suspect]
     Indication: BLOOD PRESSURE INCREASED
     Dosage: 25 MG, UNK
     Dates: start: 201201
  5. NAPRIX [Suspect]
     Indication: DEPRESSION
     Dosage: 2.5 MG, UNK
  6. NAPRIX [Suspect]
     Indication: MIGRAINE
  7. AMYTRIL [Suspect]
     Indication: DEPRESSION
     Dosage: 25 MG, UNK
     Dates: start: 2005
  8. AMYTRIL [Suspect]
     Indication: BLOOD PRESSURE INCREASED
  9. AMYTRIL [Suspect]
     Indication: MIGRAINE

REACTIONS (4)
  - Off label use [Unknown]
  - Arteritis [Unknown]
  - Blood pressure increased [Unknown]
  - Vomiting [Unknown]
